FAERS Safety Report 9404475 (Version 2)
Quarter: 2013Q3

REPORT INFORMATION
  Report Type: Spontaneous
  Country: US (occurrence: None)
  Receive Date: 20130715
  Receipt Date: 20130725
  Transmission Date: 20140515
  Serious: Yes (Other)
  Sender: FDA-Public Use
  Company Number: TPA2013A06549

PATIENT
  Age: 61 Year
  Sex: Male
  Weight: 90.72 kg

DRUGS (10)
  1. ULORIC (FEBUXOSTAT) [Suspect]
     Indication: HYPERURICAEMIA
     Route: 048
     Dates: start: 201003
  2. LEVOTHYROXINE (LEVOTHYROXINE) [Concomitant]
  3. WELCHOL [Concomitant]
  4. BABY ASA [Concomitant]
  5. FIBERCON [Concomitant]
  6. NEORAL (CICLOSPORIN) [Concomitant]
  7. CELLCEPT [Concomitant]
  8. PREDNISONE (PREDNISONE) [Concomitant]
  9. REQUIP [Concomitant]
  10. PEPCID [Concomitant]

REACTIONS (5)
  - Blood creatinine increased [None]
  - Overdose [None]
  - Bone marrow failure [None]
  - Diarrhoea [None]
  - Renal failure [None]
